FAERS Safety Report 9126268 (Version 1)
Quarter: 2013Q1

REPORT INFORMATION
  Report Type: Spontaneous
  Country: US (occurrence: US)
  Receive Date: 20130117
  Receipt Date: 20130117
  Transmission Date: 20140127
  Serious: Yes (Other)
  Sender: FDA-Public Use
  Company Number: US-GLAXOSMITHKLINE-A1008643A

PATIENT
  Age: 79 Year
  Sex: Male

DRUGS (2)
  1. GAVISCON EXTRA STRENGTH [Suspect]
     Route: 065
  2. CELEBREX [Suspect]
     Route: 065

REACTIONS (2)
  - Haematochezia [Not Recovered/Not Resolved]
  - Faeces discoloured [Not Recovered/Not Resolved]
